FAERS Safety Report 25656396 (Version 3)
Quarter: 2025Q3

REPORT INFORMATION
  Report Type: Spontaneous
  Country: US (occurrence: US)
  Receive Date: 20250807
  Receipt Date: 20250823
  Transmission Date: 20251021
  Serious: No
  Sender: BridgeBio Pharma
  Company Number: US-BRIDGEBIO-25US001158

PATIENT

DRUGS (2)
  1. ATTRUBY [Suspect]
     Active Substance: ACORAMIDIS HYDROCHLORIDE
     Indication: Cardiac amyloidosis
     Route: 065
     Dates: start: 20250410
  2. VYNDAMAX [Suspect]
     Active Substance: TAFAMIDIS
     Indication: Cardiac amyloidosis
     Route: 065
     Dates: start: 20250427, end: 20250617

REACTIONS (3)
  - Abdominal discomfort [Recovered/Resolved]
  - Decreased appetite [Recovered/Resolved]
  - Weight decreased [Recovered/Resolved]

NARRATIVE: CASE EVENT DATE: 20250418
